FAERS Safety Report 8379589-6 (Version None)
Quarter: 2012Q2

REPORT INFORMATION
  Report Type: 
  Country: None (occurrence: None)
  Receive Date: 20120523
  Receipt Date: 20120509
  Transmission Date: 20120825
  Serious: Yes (Hospitalization, Other)
  Sender: FDA-Public Use
  Company Number: US-JNJFOC-20120413887

PATIENT
  Sex: Female
  Weight: 53.98 kg

DRUGS (1)
  1. LEVAQUIN [Suspect]
     Indication: PNEUMONIA
     Route: 048
     Dates: start: 20110623, end: 20110601

REACTIONS (15)
  - ARTHRITIS [None]
  - TENDON PAIN [None]
  - CYANOSIS [None]
  - FATIGUE [None]
  - BURSITIS [None]
  - TENDON RUPTURE [None]
  - NERVOUS SYSTEM DISORDER [None]
  - HEART RATE IRREGULAR [None]
  - GAIT DISTURBANCE [None]
  - BALANCE DISORDER [None]
  - OEDEMA PERIPHERAL [None]
  - TENDONITIS [None]
  - CARPAL TUNNEL SYNDROME [None]
  - FEELING ABNORMAL [None]
  - BACK PAIN [None]
